FAERS Safety Report 18249450 (Version 2)
Quarter: 2020Q3

REPORT INFORMATION
  Report Type: Spontaneous
  Country: US (occurrence: US)
  Receive Date: 20200910
  Receipt Date: 20200927
  Transmission Date: 20201103
  Serious: No
  Sender: FDA-Public Use
  Company Number: US-ASTRAZENECA-2020SF12822

PATIENT
  Sex: Female
  Weight: 99.8 kg

DRUGS (2)
  1. BYDUREON BCISE [Suspect]
     Active Substance: EXENATIDE
     Indication: DIABETES MELLITUS
     Route: 058
     Dates: start: 20190509
  2. BYDUREON [Suspect]
     Active Substance: EXENATIDE
     Indication: DIABETES MELLITUS
     Route: 058
     Dates: start: 20181111, end: 20190509

REACTIONS (8)
  - Weight increased [Unknown]
  - Circumstance or information capable of leading to medication error [Unknown]
  - Injection site pain [Unknown]
  - Weight decreased [Unknown]
  - Device occlusion [Unknown]
  - Device leakage [Unknown]
  - Unevaluable event [Unknown]
  - Fatigue [Unknown]

NARRATIVE: CASE EVENT DATE: 20200828
